FAERS Safety Report 9073435 (Version 1)
Quarter: 2013Q1

REPORT INFORMATION
  Report Type: Report from Study
  Country: US (occurrence: US)
  Receive Date: 20130129
  Receipt Date: 20130129
  Transmission Date: 20140127
  Serious: No
  Sender: FDA-Public Use
  Company Number: US-ABBOTT-12P-163-0931067-00

PATIENT
  Sex: Male

DRUGS (6)
  1. HUMIRA 40 MG/0.8 ML PEN [Suspect]
     Indication: ANKYLOSING SPONDYLITIS
     Route: 058
     Dates: start: 201203
  2. UROXATRAL [Concomitant]
     Indication: PRODUCT USED FOR UNKNOWN INDICATION
  3. AMBIEN CR [Concomitant]
     Indication: PRODUCT USED FOR UNKNOWN INDICATION
  4. METOPROLOL SUCC ER [Concomitant]
     Indication: PRODUCT USED FOR UNKNOWN INDICATION
  5. PRADAXA [Concomitant]
     Indication: PRODUCT USED FOR UNKNOWN INDICATION
  6. OMEPRAZOLE DR [Concomitant]
     Indication: PRODUCT USED FOR UNKNOWN INDICATION

REACTIONS (2)
  - Muscle spasms [Unknown]
  - Oral herpes [Unknown]
